FAERS Safety Report 8322352-2 (Version None)
Quarter: 2012Q2

REPORT INFORMATION
  Report Type: 
  Country: None (occurrence: None)
  Receive Date: 20120430
  Receipt Date: 20120419
  Transmission Date: 20120825
  Serious: Yes (Hospitalization, Other)
  Sender: FDA-Public Use
  Company Number: US-ASTRAZENECA-2010SE22105

PATIENT
  Age: 52 Year
  Sex: Female

DRUGS (2)
  1. PRILOSEC OTC [Suspect]
     Route: 048
  2. NEXIUM [Suspect]
     Route: 048

REACTIONS (7)
  - JOINT INJURY [None]
  - HYPOAESTHESIA [None]
  - FALL [None]
  - GASTROINTESTINAL MOTILITY DISORDER [None]
  - ARTHROPATHY [None]
  - FOOT FRACTURE [None]
  - FAECES DISCOLOURED [None]
